FAERS Safety Report 9184075 (Version 1)
Quarter: 2013Q1

REPORT INFORMATION
  Report Type: Spontaneous
  Country: US (occurrence: US)
  Receive Date: 20130322
  Receipt Date: 20130322
  Transmission Date: 20140127
  Serious: No
  Sender: FDA-Public Use
  Company Number: US-BRISTOL-MYERS SQUIBB COMPANY-16723256

PATIENT
  Age: 50 Year
  Sex: Male
  Weight: 93.42 kg

DRUGS (4)
  1. ERBITUX [Suspect]
     Dosage: INF:4
  2. FOLINIC ACID [Concomitant]
  3. FLUOROURACIL [Concomitant]
  4. OXALIPLATIN [Concomitant]

REACTIONS (2)
  - Rash [Recovering/Resolving]
  - Scab [Unknown]
